FAERS Safety Report 8470648 (Version 3)
Quarter: 2013Q3

REPORT INFORMATION
  Report Type: Spontaneous
  Country: US (occurrence: US)
  Receive Date: 20120321
  Receipt Date: 20130703
  Transmission Date: 20140515
  Serious: No
  Sender: FDA-Public Use
  Company Number: US-PFIZER INC-2012063515

PATIENT
  Age: 60 Year
  Sex: Female
  Weight: 46 kg

DRUGS (10)
  1. DILANTIN [Suspect]
     Indication: CONVULSION
     Dosage: 100MG ORAL CAPSULE FOUR TIMES A DAY FOR FOUR DAYS IN WEEK
     Route: 048
     Dates: start: 1984
  2. DILANTIN [Suspect]
     Dosage: 100MG FOUR DAYS IN A WEEK
     Route: 048
     Dates: start: 1984
  3. DILANTIN [Suspect]
     Dosage: 100MG THREE DAYS IN WEEK
     Route: 048
  4. DILANTIN [Suspect]
     Indication: CONVULSION
     Dosage: UNK
  5. SYNTHROID [Concomitant]
     Indication: THYROID DISORDER
     Dosage: 137 UG, 1X/DAY
     Route: 048
  6. MYSOLINE [Concomitant]
     Dosage: UNK
  7. VIMPAT [Concomitant]
     Dosage: UNK
  8. LEVOXYL [Concomitant]
     Indication: THYROID DISORDER
     Dosage: UNK
  9. TOPAMAX [Concomitant]
     Dosage: UNK
  10. MAXALT [Concomitant]
     Indication: MIGRAINE
     Dosage: 10 MG, AS NEEDED
     Route: 048

REACTIONS (3)
  - Drug ineffective [Unknown]
  - Dental caries [Unknown]
  - Malaise [Unknown]
